FAERS Safety Report 5075027-X (Version None)
Quarter: 2006Q3

REPORT INFORMATION
  Report Type: 
  Country: None (occurrence: None)
  Receive Date: 20060717
  Receipt Date: 20060125
  Transmission Date: 20061208
  Serious: No
  Sender: FDA-Public Use
  Company Number: 2006000227

PATIENT
  Age: 83 Year
  Sex: Female

DRUGS (15)
  1. TARCEVA [Suspect]
     Indication: ADENOSQUAMOUS CELL LUNG CANCER
     Dosage: 100 MG (QD), ORAL
     Route: 048
     Dates: start: 20051215
  2. LASIX [Concomitant]
  3. ALBUTEROL [Concomitant]
  4. ASPIRIN [Concomitant]
  5. WARFARIN SODIUM [Concomitant]
  6. LAMISIL [Concomitant]
  7. ALTACE [Concomitant]
  8. TRAMADOL HCL [Concomitant]
  9. SYNTHROID [Concomitant]
  10. NEURONTIN [Concomitant]
  11. IRON (IRON) [Concomitant]
  12. SPIRONOLACTONE [Concomitant]
  13. AMORIL [Concomitant]
  14. LANTUS [Concomitant]
  15. INSULIN [Concomitant]

REACTIONS (2)
  - DIARRHOEA [None]
  - HAEMOPTYSIS [None]
